FAERS Safety Report 18197475 (Version 3)
Quarter: 2021Q4

REPORT INFORMATION
  Report Type: Spontaneous
  Country: BE (occurrence: BE)
  Receive Date: 20200826
  Receipt Date: 20211224
  Transmission Date: 20220303
  Serious: Yes (Other)
  Sender: FDA-Public Use
  Company Number: BE-AUROBINDO-AUR-APL-2020-044453

PATIENT
  Age: 35 Year
  Sex: Male

DRUGS (15)
  1. ACYCLOVIR [Suspect]
     Active Substance: ACYCLOVIR
     Indication: Acanthamoeba keratitis
     Dosage: UNK
     Route: 048
  2. IBUPROFEN [Suspect]
     Active Substance: IBUPROFEN
     Indication: Acanthamoeba keratitis
     Dosage: 600 MILLIGRAM, 3 TIMES A DAY
     Route: 048
  3. MOXIFLOXACIN [Suspect]
     Active Substance: MOXIFLOXACIN
     Indication: Acanthamoeba keratitis
     Dosage: UNK, SIX TIMES A DAY
     Route: 065
  4. ITRACONAZOLE [Suspect]
     Active Substance: ITRACONAZOLE
     Indication: Acanthamoeba keratitis
     Dosage: 100 MILLIGRAM
     Route: 048
  5. AMPHOTERICIN B [Suspect]
     Active Substance: AMPHOTERICIN B
     Indication: Acanthamoeba keratitis
     Dosage: 6 TIMES A DAY
     Route: 065
  6. ATROPINE [Suspect]
     Active Substance: ATROPINE
     Indication: Acanthamoeba keratitis
     Dosage: UNK, TWO TIMES A DAY, 1 DAY
     Route: 065
  7. AZATHIOPRINE [Suspect]
     Active Substance: AZATHIOPRINE
     Indication: Acanthamoeba keratitis
     Dosage: 150 MILLIGRAM, ONCE A DAY
     Route: 065
  8. CHLORHEXIDINE [Suspect]
     Active Substance: CHLORHEXIDINE
     Indication: Acanthamoeba keratitis
     Dosage: UNK
     Route: 065
  9. HEXAMIDINE DIISETHIONATE [Suspect]
     Active Substance: HEXAMIDINE DIISETHIONATE
     Indication: Acanthamoeba keratitis
     Dosage: 0.1 PERCENT
     Route: 048
  10. METHYLPREDNISOLONE [Suspect]
     Active Substance: METHYLPREDNISOLONE
     Indication: Acanthamoeba keratitis
     Dosage: UNK
     Route: 048
  11. NEPAFENAC [Suspect]
     Active Substance: NEPAFENAC
     Indication: Acanthamoeba keratitis
     Dosage: 0.1 PERCENT, ONCE A DAY
     Route: 061
  12. PROPAMIDINE ISETHIONATE [Suspect]
     Active Substance: PROPAMIDINE ISETHIONATE
     Indication: Acanthamoeba keratitis
     Dosage: UNK, EVERY HOUR, ONCE EVERY HOUR FOR FIRST 24 HRS
     Route: 065
  13. POLIHEXANIDE [Suspect]
     Active Substance: POLIHEXANIDE
     Indication: Acanthamoeba keratitis
     Dosage: UNK, SIX TIMES A DAY
     Route: 048
  14. POLIHEXANIDE [Suspect]
     Active Substance: POLIHEXANIDE
     Dosage: ONCE EVERY HOUR FOR FIRST 24 HRS
     Route: 065
  15. SOLU-MEDROL [Suspect]
     Active Substance: METHYLPREDNISOLONE SODIUM SUCCINATE
     Indication: Acanthamoeba keratitis
     Dosage: 1 GRAM (FOR 3 DAYS)
     Route: 042

REACTIONS (16)
  - Anaemia [Unknown]
  - Bronchopulmonary aspergillosis [Unknown]
  - Osteonecrosis [Unknown]
  - Scleritis [Not Recovered/Not Resolved]
  - Anterior chamber inflammation [Unknown]
  - Keratic precipitates [Unknown]
  - Corneal epithelium defect [Unknown]
  - Blood lactate dehydrogenase increased [Unknown]
  - Myopathy [Unknown]
  - Muscle atrophy [Unknown]
  - Asthenia [Unknown]
  - Corneal oedema [Unknown]
  - Pulmonary mass [Unknown]
  - Muscular weakness [Unknown]
  - Toxicity to various agents [Unknown]
  - Drug ineffective [Unknown]
